FAERS Safety Report 7262022-5 (Version None)
Quarter: 2011Q1

REPORT INFORMATION
  Report Type: 
  Country: None (occurrence: None)
  Receive Date: 20110130
  Receipt Date: 20101104
  Transmission Date: 20110831
  Serious: No
  Sender: FDA-Public Use
  Company Number: US-ABBOTT-10P-163-0683519-00

PATIENT
  Age: 43 Year
  Sex: Female

DRUGS (3)
  1. SINGULAIR [Concomitant]
     Indication: SEASONAL ALLERGY
  2. HUMIRA [Suspect]
     Indication: CROHN'S DISEASE
     Dates: start: 20101001
  3. LEXAPRO [Concomitant]
     Indication: DEPRESSION

REACTIONS (2)
  - INJECTION SITE REACTION [None]
  - URTICARIA [None]
